FAERS Safety Report 5640156-6 (Version None)
Quarter: 2008Q1

REPORT INFORMATION
  Report Type: 
  Country: None (occurrence: None)
  Receive Date: 20080227
  Receipt Date: 20080204
  Transmission Date: 20080703
  Serious: No
  Sender: FDA-Public Use
  Company Number: US-BAXTER-2008BH001027

PATIENT
  Age: 67 Year
  Sex: Female

DRUGS (3)
  1. HEPARIN SODIUM [Suspect]
     Indication: PROPHYLAXIS
     Route: 042
     Dates: start: 20080101, end: 20080131
  2. HEPARIN SODIUM [Suspect]
     Route: 042
     Dates: start: 20080131, end: 20080131
  3. IMMUNOSUPPRESSIVE AGENTS [Concomitant]
     Indication: DRUG USE FOR UNKNOWN INDICATION
     Dosage: DOSE UNIT:UNKNOWN
     Route: 065

REACTIONS (6)
  - BLOOD PRESSURE DECREASED [None]
  - DIZZINESS [None]
  - SENSATION OF PRESSURE [None]
  - SWELLING FACE [None]
  - TACHYCARDIA [None]
  - THROMBOSIS IN DEVICE [None]
